FAERS Safety Report 6277701-6 (Version None)
Quarter: 2009Q3

REPORT INFORMATION
  Report Type: 
  Country: None (occurrence: None)
  Receive Date: 20090722
  Receipt Date: 20090713
  Transmission Date: 20100115
  Serious: Yes (Other)
  Sender: FDA-Public Use
  Company Number: A0784323A

PATIENT
  Age: 66 Year
  Sex: Male

DRUGS (8)
  1. FLONASE [Suspect]
     Indication: DRUG USE FOR UNKNOWN INDICATION
     Route: 065
     Dates: start: 20070101
  2. ADVAIR HFA [Suspect]
     Indication: ASTHMA
     Dosage: 1PUFF TWICE PER DAY
     Route: 055
     Dates: start: 20050101
  3. LEVAQUIN [Suspect]
  4. OMNARIS [Suspect]
  5. CLARINEX [Concomitant]
  6. PREVACID [Concomitant]
  7. FLOMAX [Concomitant]
  8. FINASTERIDE [Concomitant]

REACTIONS (8)
  - APHONIA [None]
  - CHOKING [None]
  - COUGH [None]
  - DYSPHAGIA [None]
  - MUSCLE SPASMS [None]
  - NASAL DISCOMFORT [None]
  - NASOPHARYNGITIS [None]
  - PAROSMIA [None]
